FAERS Safety Report 11965896 (Version 2)
Quarter: 2016Q2

REPORT INFORMATION
  Report Type: Report from Study
  Country: JP (occurrence: JP)
  Receive Date: 20160127
  Receipt Date: 20160412
  Transmission Date: 20160815
  Serious: Yes (Congenital Anomaly, Other)
  Sender: FDA-Public Use
  Company Number: JP-VIIV HEALTHCARE LIMITED-JP2016GSK004898

PATIENT
  Sex: Male
  Weight: 3 kg

DRUGS (8)
  1. ZIDOVUDINE. [Suspect]
     Active Substance: ZIDOVUDINE
     Dosage: 400 MG, QD
     Route: 064
     Dates: start: 20031009, end: 20031111
  2. LAMIVUDINE. [Suspect]
     Active Substance: LAMIVUDINE
     Indication: ANTIRETROVIRAL THERAPY
     Dosage: 300 MG, QD
     Route: 064
     Dates: start: 20030428, end: 20031111
  3. VIRACEPT [Suspect]
     Active Substance: NELFINAVIR MESYLATE
     Indication: ANTIRETROVIRAL THERAPY
     Dosage: 2250 MG, QD
     Route: 064
     Dates: start: 20030428, end: 20030505
  4. VIRACEPT [Suspect]
     Active Substance: NELFINAVIR MESYLATE
     Dosage: 250 MG, QD
     Route: 064
     Dates: start: 20020509, end: 20031006
  5. STAVUDINE. [Suspect]
     Active Substance: STAVUDINE
     Indication: ANTIRETROVIRAL THERAPY
     Dosage: 60 MG, QD
     Route: 064
     Dates: start: 20030428, end: 20030527
  6. ZIDOVUDINE. [Suspect]
     Active Substance: ZIDOVUDINE
     Indication: ANTIRETROVIRAL THERAPY
     Dosage: 400 MG, QD
     Route: 064
     Dates: start: 20030522, end: 20031006
  7. LAMIVUDINE. [Suspect]
     Active Substance: LAMIVUDINE
     Dosage: UNK UNK, QD
     Route: 064
     Dates: start: 20031009, end: 20031111
  8. VIRACEPT [Suspect]
     Active Substance: NELFINAVIR MESYLATE
     Dosage: 250 MG, QD
     Route: 064
     Dates: start: 20031009, end: 20031111

REACTIONS (2)
  - Congenital hydronephrosis [Unknown]
  - Foetal exposure during pregnancy [Unknown]
